FAERS Safety Report 12930149 (Version 1)
Quarter: 2016Q4

REPORT INFORMATION
  Report Type: Spontaneous
  Country: DE (occurrence: DE)
  Receive Date: 20161110
  Receipt Date: 20161110
  Transmission Date: 20170207
  Serious: Yes (Other)
  Sender: FDA-Public Use
  Company Number: DE-TEVA-708427GER

PATIENT
  Age: 37 Year
  Sex: Female
  Weight: 63 kg

DRUGS (8)
  1. PREDNISOLON [Suspect]
     Active Substance: PREDNISOLONE
     Indication: PROPHYLAXIS AGAINST TRANSPLANT REJECTION
     Dosage: 15 MILLIGRAM DAILY;
     Route: 048
     Dates: start: 20151109, end: 20160514
  2. METHYLDOPA. [Suspect]
     Active Substance: METHYLDOPA
     Indication: HYPERTENSION
     Dosage: 1000 MILLIGRAM DAILY;
     Route: 048
     Dates: start: 20151109, end: 20160514
  3. FOLS?URE [Concomitant]
     Indication: PROPHYLAXIS OF NEURAL TUBE DEFECT
     Route: 048
  4. VIGANTOLETTEN 1000 [Concomitant]
     Indication: OSTEOPOROSIS PROPHYLAXIS
     Dosage: 1000 IU (INTERNATIONAL UNIT) DAILY;
     Route: 048
  5. PROGRAF [Suspect]
     Active Substance: TACROLIMUS\TACROLIMUS ANHYDROUS
     Indication: PROPHYLAXIS AGAINST TRANSPLANT REJECTION
     Dosage: DOSAGE NOT EXACTLY KNOWN: SOMETHING BETWEEN 2 AND 9 MG DAILY.
     Route: 048
     Dates: start: 20151109, end: 20160514
  6. ASPIRIN. [Concomitant]
     Active Substance: ASPIRIN
     Indication: PROPHYLAXIS
     Dosage: 100 MILLIGRAM DAILY;
     Route: 048
     Dates: start: 20151109, end: 20160509
  7. METOPROLOL. [Concomitant]
     Active Substance: METOPROLOL
     Indication: HYPERTENSION
     Dosage: 142.5 MILLIGRAM DAILY;
     Route: 048
     Dates: start: 20151109, end: 20160514
  8. NIFEDIPIN [Concomitant]
     Active Substance: NIFEDIPINE
     Indication: HYPERTENSION
     Dosage: 40 MILLIGRAM DAILY;
     Route: 048
     Dates: start: 20151109, end: 20160511

REACTIONS (2)
  - Pancreatitis acute [Recovered/Resolved]
  - Gestational diabetes [Recovered/Resolved]
